FAERS Safety Report 6318311-1 (Version None)
Quarter: 2009Q3

REPORT INFORMATION
  Report Type: 
  Country: None (occurrence: None)
  Receive Date: 20090820
  Receipt Date: 20090820
  Transmission Date: 20100115
  Serious: Yes (Hospitalization)
  Sender: FDA-Public Use
  Company Number: None

PATIENT
  Age: 68 Year
  Sex: Male

DRUGS (1)
  1. NAFCILLIN [Suspect]
     Dosage: 2 MG OTHER IV
     Route: 042
     Dates: start: 20090504, end: 20090605

REACTIONS (2)
  - PRURITUS [None]
  - RASH [None]
